FAERS Safety Report 15355778 (Version 1)
Quarter: 2018Q3

REPORT INFORMATION
  Report Type: Spontaneous
  Country: US (occurrence: US)
  Receive Date: 20180830
  Receipt Date: 20180830
  Transmission Date: 20181010
  Serious: Yes (Life-Threatening, Hospitalization, Disabling)
  Sender: FDA-Public Use
  Company Number: None

PATIENT
  Age: 95 Year
  Sex: Female
  Weight: 52.16 kg

DRUGS (3)
  1. FUROSEMIDE 20 MG BID [Concomitant]
  2. METOLAZONE. [Suspect]
     Active Substance: METOLAZONE
     Route: 048
     Dates: end: 20180314
  3. METAZOLONE 5 MG QD [Concomitant]

REACTIONS (1)
  - Pancreatitis relapsing [None]

NARRATIVE: CASE EVENT DATE: 20180308
